FAERS Safety Report 16044968 (Version 1)
Quarter: 2019Q1

REPORT INFORMATION
  Report Type: Spontaneous
  Country: US (occurrence: US)
  Receive Date: 20190307
  Receipt Date: 20190307
  Transmission Date: 20190418
  Serious: Yes (Hospitalization, Other)
  Sender: FDA-Public Use
  Company Number: US-LUPIN PHARMACEUTICALS INC.-2019-01173

PATIENT
  Age: 55 Year
  Sex: Female

DRUGS (12)
  1. VALPROATE [Suspect]
     Active Substance: VALPROIC ACID
     Indication: HOMICIDAL IDEATION
  2. PALIPERIDONE. [Suspect]
     Active Substance: PALIPERIDONE
     Indication: SUICIDAL IDEATION
     Dosage: UNK
     Route: 065
  3. DULOXETINE. [Suspect]
     Active Substance: DULOXETINE
     Indication: SUICIDAL IDEATION
     Dosage: UNK
     Route: 065
  4. CARBAMAZEPINE. [Suspect]
     Active Substance: CARBAMAZEPINE
     Indication: SUICIDAL IDEATION
     Dosage: UNK
     Route: 065
  5. QUETIAPINE FUMARATE. [Suspect]
     Active Substance: QUETIAPINE FUMARATE
     Indication: HOMICIDAL IDEATION
  6. CARBAMAZEPINE. [Suspect]
     Active Substance: CARBAMAZEPINE
     Indication: HOMICIDAL IDEATION
  7. PALIPERIDONE. [Suspect]
     Active Substance: PALIPERIDONE
     Indication: HOMICIDAL IDEATION
  8. VALPROATE [Suspect]
     Active Substance: VALPROIC ACID
     Indication: SUICIDAL IDEATION
     Dosage: UNK
     Route: 065
  9. TRAZODONE [Suspect]
     Active Substance: TRAZODONE HYDROCHLORIDE
     Indication: HOMICIDAL IDEATION
  10. QUETIAPINE FUMARATE. [Suspect]
     Active Substance: QUETIAPINE FUMARATE
     Indication: SUICIDAL IDEATION
     Dosage: UNK
     Route: 065
  11. DULOXETINE. [Suspect]
     Active Substance: DULOXETINE
     Indication: HOMICIDAL IDEATION
  12. TRAZODONE [Suspect]
     Active Substance: TRAZODONE HYDROCHLORIDE
     Indication: SUICIDAL IDEATION
     Dosage: UNK
     Route: 065

REACTIONS (6)
  - Parkinsonism [Recovered/Resolved]
  - Muscle rigidity [Recovered/Resolved]
  - Myoclonus [Recovered/Resolved]
  - Encephalomyelitis [Recovered/Resolved]
  - Dysphagia [Recovered/Resolved]
  - Catatonia [Recovered/Resolved]
